FAERS Safety Report 7792072-1 (Version None)
Quarter: 2011Q3

REPORT INFORMATION
  Report Type: 
  Country: None (occurrence: None)
  Receive Date: 20110929
  Receipt Date: 20110919
  Transmission Date: 20111222
  Serious: Yes (Hospitalization)
  Sender: FDA-Public Use
  Company Number: 2011POI058100001

PATIENT
  Age: 66 Year
  Sex: Female

DRUGS (4)
  1. AZATHIOPRINE [Suspect]
     Indication: IMMUNOSUPPRESSANT DRUG THERAPY
     Dosage: ORAL
     Route: 048
     Dates: end: 20110201
  2. ULORIC [Suspect]
     Indication: GOUT
     Dosage: 40 MG (1 D)
     Dates: start: 20101201, end: 20110201
  3. MODIFIED CYCLOSPORINE (CICLOSPORIN) [Concomitant]
  4. PREDNISONE TAB [Concomitant]

REACTIONS (15)
  - NAUSEA [None]
  - PANCYTOPENIA [None]
  - NEOPLASM MALIGNANT [None]
  - VOMITING [None]
  - DIARRHOEA [None]
  - FATIGUE [None]
  - OPPORTUNISTIC INFECTION [None]
  - TOXICITY TO VARIOUS AGENTS [None]
  - WEIGHT DECREASED [None]
  - EPSTEIN-BARR VIRAEMIA [None]
  - BLOOD CREATININE INCREASED [None]
  - MALAISE [None]
  - GOUT [None]
  - DRUG INTERACTION [None]
  - INFLUENZA [None]
